FAERS Safety Report 23117107 (Version 1)
Quarter: 2023Q4

REPORT INFORMATION
  Report Type: Spontaneous
  Country: US (occurrence: None)
  Receive Date: 20231026
  Receipt Date: 20231026
  Transmission Date: 20240109
  Serious: No
  Sender: FDA-Public Use
  Company Number: None

PATIENT
  Age: 75 Year
  Sex: Female
  Weight: 80.29 kg

DRUGS (1)
  1. TERIPARATIDE [Suspect]
     Active Substance: TERIPARATIDE
     Indication: Senile osteoporosis
     Dosage: OTHER STRENGTH : 620MCG/2.48ML;?FREQUENCY : DAILY;?
     Route: 058
     Dates: start: 202310

REACTIONS (6)
  - Oral infection [None]
  - Gastrointestinal obstruction [None]
  - Hernia obstructive [None]
  - Pneumonia [None]
  - Peritonitis [None]
  - Small intestinal resection [None]
